FAERS Safety Report 9391463 (Version 2)
Quarter: 2013Q4

REPORT INFORMATION
  Report Type: Spontaneous
  Country: FR (occurrence: FR)
  Receive Date: 20130709
  Receipt Date: 20131024
  Transmission Date: 20140711
  Serious: Yes (Hospitalization)
  Sender: FDA-Public Use
  Company Number: FR-TEVA-412912ISR

PATIENT
  Age: 90 Year
  Sex: Female

DRUGS (7)
  1. FUROSEMIDE TEVA 40 MG, COMPRIME SECABLE [Suspect]
     Dosage: 40 MILLIGRAM DAILY; DIVISIBLE TABLETS
     Route: 048
     Dates: start: 201201, end: 201306
  2. AMIODARONE [Concomitant]
     Dosage: 1 DOSAGE FORMS DAILY;
  3. DIFFU K [Concomitant]
     Dosage: 2 DOSAGE FORMS DAILY;
  4. KARDEGIC [Concomitant]
     Dosage: 1 DOSAGE FORMS DAILY;
  5. PENTOFLUX [Concomitant]
     Dosage: 2 DOSAGE FORMS DAILY;
  6. CALCIUM [Concomitant]
  7. VIT D3 [Concomitant]

REACTIONS (3)
  - Somnolence [Unknown]
  - Decreased interest [Unknown]
  - Depression [Unknown]
